FAERS Safety Report 20072562 (Version 1)
Quarter: 2021Q4

REPORT INFORMATION
  Report Type: Spontaneous
  Country: ES (occurrence: ES)
  Receive Date: 20211116
  Receipt Date: 20211116
  Transmission Date: 20220303
  Serious: Yes (Other)
  Sender: FDA-Public Use
  Company Number: None

PATIENT
  Age: 40 Year
  Sex: Male

DRUGS (2)
  1. VIMPAT [Interacting]
     Active Substance: LACOSAMIDE
     Dosage: 200MG DAILY
     Dates: start: 2019
  2. MAYZENT [Interacting]
     Active Substance: SIPONIMOD
     Indication: Secondary progressive multiple sclerosis
     Dosage: 1 MMG DAILY

REACTIONS (2)
  - Lymphopenia [Unknown]
  - Drug interaction [Unknown]
